FAERS Safety Report 7957823-1 (Version None)
Quarter: 2011Q4

REPORT INFORMATION
  Report Type: 
  Country: None (occurrence: None)
  Receive Date: 20111130
  Receipt Date: 20111122
  Transmission Date: 20120403
  Serious: Yes (Other)
  Sender: FDA-Public Use
  Company Number: 2011S1001488

PATIENT
  Age: 32 Year
  Sex: Male
  Weight: 63 kg

DRUGS (8)
  1. FOIPAN [Concomitant]
  2. BERIZYM /01945301/ [Concomitant]
  3. EPADEL-S [Concomitant]
  4. URSO /00465701/ [Concomitant]
  5. LORELCO [Concomitant]
  6. CHOLEBRINE [Concomitant]
  7. LANSOPRAZOLE [Concomitant]
  8. LIVALO [Suspect]
     Indication: HYPERCHOLESTEROLAEMIA
     Dosage: 2 MG;1X;PO
     Route: 048
     Dates: start: 20110922, end: 20111020

REACTIONS (2)
  - MALAISE [None]
  - HEPATITIS [None]
